FAERS Safety Report 9753861 (Version 1)
Quarter: 2013Q4

REPORT INFORMATION
  Report Type: Spontaneous
  Country: US (occurrence: US)
  Receive Date: 20131213
  Receipt Date: 20131213
  Transmission Date: 20140711
  Serious: No
  Sender: FDA-Public Use
  Company Number: US-GILEAD-2010-0027664

PATIENT
  Sex: Female
  Weight: 78.92 kg

DRUGS (12)
  1. LETAIRIS [Suspect]
     Indication: PULMONARY ARTERIAL HYPERTENSION
     Route: 048
     Dates: start: 20100126
  2. NOVOLIN [Concomitant]
  3. BONIVA [Concomitant]
  4. COZAAR [Concomitant]
  5. PLAQUENIL [Concomitant]
  6. LASIX [Concomitant]
  7. PREDNISONE [Concomitant]
  8. TRILIPIX [Concomitant]
  9. IMURAN [Concomitant]
  10. CARDIZEM [Concomitant]
  11. LANTUS [Concomitant]
  12. THEOPHYLLINE [Concomitant]

REACTIONS (1)
  - Unevaluable event [Unknown]
